FAERS Safety Report 18825633 (Version 2)
Quarter: 2021Q1

REPORT INFORMATION
  Report Type: Other
  Country: US (occurrence: US)
  Receive Date: 20210202
  Receipt Date: 20210316
  Transmission Date: 20210419
  Serious: Yes (Hospitalization, Other)
  Sender: FDA-Public Use
  Company Number: US-AMAG PHARMACEUTICALS, INC.-AMAG202100262

PATIENT
  Age: 28 Year
  Sex: Female

DRUGS (4)
  1. BETAMETHASONE. [Concomitant]
     Active Substance: BETAMETHASONE
     Indication: PRODUCT USED FOR UNKNOWN INDICATION
     Dosage: TWO 12 MG DOSES
     Route: 030
     Dates: start: 20210108, end: 20210109
  2. MAKENA [Suspect]
     Active Substance: HYDROXYPROGESTERONE CAPROATE
     Indication: PREMATURE DELIVERY
     Dosage: 275MG/1.1ML
     Route: 058
     Dates: start: 20201005, end: 20210112
  3. PROGESTERONE (VAGINAL) [Concomitant]
     Indication: PREMATURE LABOUR
     Dates: end: 20210117
  4. PRENATAL VITAMINS [Concomitant]
     Active Substance: VITAMINS
     Indication: PRODUCT USED FOR UNKNOWN INDICATION
     Dosage: 1 TAB DAILY
     Dates: start: 20200827

REACTIONS (4)
  - Product administered at inappropriate site [Unknown]
  - Preterm premature rupture of membranes [Recovered/Resolved]
  - Cervical dilatation [Recovered/Resolved]
  - Premature delivery [Recovered/Resolved]

NARRATIVE: CASE EVENT DATE: 20210108
